FAERS Safety Report 25749693 (Version 3)
Quarter: 2025Q3

REPORT INFORMATION
  Report Type: Spontaneous
  Country: US (occurrence: US)
  Receive Date: 20250902
  Receipt Date: 20250910
  Transmission Date: 20251020
  Serious: No
  Sender: ROCHE
  Company Number: US-ROCHE-10000372014

PATIENT
  Age: 77 Year
  Sex: Male

DRUGS (1)
  1. ERIVEDGE [Suspect]
     Active Substance: VISMODEGIB
     Indication: Basal cell carcinoma
     Route: 048
     Dates: start: 202506

REACTIONS (7)
  - Muscle spasms [Unknown]
  - Dry mouth [Unknown]
  - Ageusia [Unknown]
  - Dysgeusia [Unknown]
  - Constipation [Unknown]
  - Fatigue [Unknown]
  - Myalgia [Unknown]

NARRATIVE: CASE EVENT DATE: 20250805
